FAERS Safety Report 6879356-6 (Version None)
Quarter: 2010Q3

REPORT INFORMATION
  Report Type: 
  Country: None (occurrence: None)
  Receive Date: 20100728
  Receipt Date: 20100716
  Transmission Date: 20110219
  Serious: Yes (Other)
  Sender: FDA-Public Use
  Company Number: US-SP-2010-03939

PATIENT
  Age: 76 Year
  Sex: Female

DRUGS (1)
  1. BCG  THERAPEUTICS [Suspect]
     Indication: BLADDER CANCER
     Route: 043

REACTIONS (4)
  - BOVINE TUBERCULOSIS [None]
  - GROIN PAIN [None]
  - MUSCLE ABSCESS [None]
  - PYREXIA [None]
